FAERS Safety Report 7164232-4 (Version None)
Quarter: 2010Q4

REPORT INFORMATION
  Report Type: 
  Country: None (occurrence: None)
  Receive Date: 20101201
  Receipt Date: 20101117
  Transmission Date: 20110411
  Serious: Yes (Other)
  Sender: FDA-Public Use
  Company Number: MPS1-1000400

PATIENT
  Age: 16 Year
  Sex: Female

DRUGS (1)
  1. ALDURAZYME [Suspect]
     Indication: MUCOPOLYSACCHARIDOSIS I
     Dates: start: 20020101

REACTIONS (8)
  - BONE DISORDER [None]
  - CARPAL TUNNEL SYNDROME [None]
  - CERVICAL SPINAL STENOSIS [None]
  - DISLOCATION OF VERTEBRA [None]
  - LIGAMENT DISORDER [None]
  - MYELOPATHY [None]
  - PAIN IN EXTREMITY [None]
  - SOFT TISSUE DISORDER [None]
